FAERS Safety Report 11659195 (Version 2)
Quarter: 2015Q4

REPORT INFORMATION
  Report Type: Spontaneous
  Country: US (occurrence: US)
  Receive Date: 20151026
  Receipt Date: 20151229
  Transmission Date: 20160304
  Serious: No
  Sender: FDA-Public Use
  Company Number: US-PFIZER INC-2015341904

PATIENT
  Age: 42 Year
  Sex: Female
  Weight: 53 kg

DRUGS (6)
  1. ADVIL [Suspect]
     Active Substance: IBUPROFEN
     Indication: TOOTH FRACTURE
     Dosage: UNK UNK, AS NEEDED
     Dates: start: 20151130
  2. ADVIL [Suspect]
     Active Substance: IBUPROFEN
     Indication: PAIN
     Dosage: UNK UNK, AS NEEDED
     Dates: start: 20151211
  3. ADVIL [Suspect]
     Active Substance: IBUPROFEN
     Indication: SWELLING
     Dosage: 3 DF, AS NEEDED
     Dates: start: 20151016
  4. XANAX [Concomitant]
     Active Substance: ALPRAZOLAM
     Indication: PAIN
     Dosage: 0.25 MG, UNK
     Dates: start: 20151013, end: 20151015
  5. ADVIL [Suspect]
     Active Substance: IBUPROFEN
     Indication: HEADACHE
     Dosage: 600 MG, EVERY 5 HRS
     Route: 048
     Dates: start: 20151008, end: 20151010
  6. ADVIL [Suspect]
     Active Substance: IBUPROFEN
     Indication: JAW FRACTURE
     Dosage: 3 DF, AS NEEDED
     Dates: start: 201510, end: 20151013

REACTIONS (3)
  - Pre-existing condition improved [Not Recovered/Not Resolved]
  - Intentional product use issue [Not Recovered/Not Resolved]
  - Blood disorder [Unknown]

NARRATIVE: CASE EVENT DATE: 201510
